FAERS Safety Report 6899118-3 (Version None)
Quarter: 2010Q3

REPORT INFORMATION
  Report Type: 
  Country: None (occurrence: None)
  Receive Date: 20100802
  Receipt Date: 20080110
  Transmission Date: 20110219
  Serious: Yes (Other)
  Sender: FDA-Public Use
  Company Number: US-PFIZER INC-2007103746

PATIENT
  Sex: Male
  Weight: 65.8 kg

DRUGS (2)
  1. LYRICA [Suspect]
     Indication: POST HERPETIC NEURALGIA
     Route: 048
     Dates: start: 20071105
  2. LYRICA [Suspect]
     Indication: HERPES ZOSTER

REACTIONS (2)
  - MUSCLE SPASMS [None]
  - PLATELET COUNT DECREASED [None]
